FAERS Safety Report 8479256-4 (Version None)
Quarter: 2012Q2

REPORT INFORMATION
  Report Type: 
  Country: None (occurrence: None)
  Receive Date: 20120629
  Receipt Date: 20120619
  Transmission Date: 20120825
  Serious: Yes (Other)
  Sender: FDA-Public Use
  Company Number: US-GLAXOSMITHKLINE-A0967419A

PATIENT
  Age: 58 Year
  Sex: Female
  Weight: 71.8 kg

DRUGS (2)
  1. SYNTHROID [Concomitant]
  2. PAXIL [Suspect]
     Indication: PANIC ATTACK
     Dosage: 10MG UNKNOWN
     Route: 048
     Dates: start: 20110112

REACTIONS (10)
  - HYPERSENSITIVITY [None]
  - HAIR GROWTH ABNORMAL [None]
  - STRABISMUS [None]
  - IMPAIRED DRIVING ABILITY [None]
  - EYELID FUNCTION DISORDER [None]
  - TRICHIASIS [None]
  - GAZE PALSY [None]
  - EYE MOVEMENT DISORDER [None]
  - VISION BLURRED [None]
  - TIC [None]
